FAERS Safety Report 7040970-9 (Version None)
Quarter: 2010Q4

REPORT INFORMATION
  Report Type: 
  Country: None (occurrence: None)
  Receive Date: 20101013
  Receipt Date: 20101006
  Transmission Date: 20110411
  Serious: Yes (Other)
  Sender: FDA-Public Use
  Company Number: CN-ROXANE LABORATORIES, INC.-2010-RO-01323RO

PATIENT
  Age: 17 Year
  Sex: Male
  Weight: 30 kg

DRUGS (8)
  1. PREDNISONE [Suspect]
     Indication: NEPHROTIC SYNDROME
     Route: 048
  2. PREDNISONE [Suspect]
     Indication: PROTEINURIA
  3. CYCLOPHOSPHAMIDE [Suspect]
     Indication: NEPHROTIC SYNDROME
  4. CYCLOPHOSPHAMIDE [Suspect]
     Indication: PROTEINURIA
  5. PREDNISOLONE [Suspect]
     Indication: NEPHROTIC SYNDROME
     Route: 048
  6. PREDNISOLONE [Suspect]
     Indication: PROTEINURIA
  7. METHYLPREDNISOLONE [Suspect]
     Indication: NEPHROTIC SYNDROME
     Route: 042
  8. METHYLPREDNISOLONE [Suspect]
     Indication: PROTEINURIA

REACTIONS (8)
  - BLOOD PRESSURE INCREASED [None]
  - CUSHINGOID [None]
  - DRUG INEFFECTIVE [None]
  - DWARFISM [None]
  - LIPOHYPERTROPHY [None]
  - PROTEINURIA [None]
  - SECONDARY SEXUAL CHARACTERISTICS ABSENCE [None]
  - SKIN ATROPHY [None]
